FAERS Safety Report 22380364 (Version 1)
Quarter: 2023Q2

REPORT INFORMATION
  Report Type: Spontaneous
  Country: JP (occurrence: JP)
  Receive Date: 20230529
  Receipt Date: 20230529
  Transmission Date: 20230721
  Serious: Yes (Hospitalization, Other)
  Sender: FDA-Public Use
  Company Number: JP-MSD-M2023-18814

PATIENT
  Age: 64 Year
  Sex: Female

DRUGS (6)
  1. LAGEVRIO [Suspect]
     Active Substance: MOLNUPIRAVIR
     Indication: COVID-19 treatment
     Dosage: 800 MILLIGRAM, BID
     Route: 048
     Dates: start: 20230511, end: 20230515
  2. HERBALS [Suspect]
     Active Substance: HERBALS
     Indication: COVID-19 treatment
     Dosage: 2.5 GRAM, TID
     Route: 048
     Dates: start: 20230511, end: 20230515
  3. HERBALS [Suspect]
     Active Substance: HERBALS
     Indication: COVID-19 treatment
     Dosage: 2.5 GRAM, TID
     Route: 048
     Dates: start: 20230511, end: 20230515
  4. IMURAN [Concomitant]
     Active Substance: AZATHIOPRINE
     Indication: Polymyositis
     Dosage: 50 MILLIGRAM, BID
     Route: 048
  5. PREDONINE [Concomitant]
     Active Substance: PREDNISOLONE
     Indication: Polymyositis
     Dosage: 5 MILLIGRAM, QD
     Route: 048
  6. SULFAMETHOXAZOLE\TRIMETHOPRIM [Concomitant]
     Active Substance: SULFAMETHOXAZOLE\TRIMETHOPRIM
     Indication: Polymyositis
     Dosage: 1 DOSAGE FORM, QOD
     Route: 048

REACTIONS (4)
  - Dehydration [Recovered/Resolved]
  - Decreased appetite [Not Recovered/Not Resolved]
  - Dizziness [Not Recovered/Not Resolved]
  - Vomiting [Recovered/Resolved]

NARRATIVE: CASE EVENT DATE: 20230512
